APPROVED DRUG PRODUCT: METHOCARBAMOL
Active Ingredient: METHOCARBAMOL
Strength: 100MG/ML
Dosage Form/Route: INJECTABLE;INJECTION
Application: A089849 | Product #001
Applicant: MARSAM PHARMACEUTICALS LLC
Approved: Dec 27, 1991 | RLD: No | RS: No | Type: DISCN